FAERS Safety Report 6676707-2 (Version None)
Quarter: 2010Q2

REPORT INFORMATION
  Report Type: 
  Country: None (occurrence: None)
  Receive Date: 20100412
  Receipt Date: 20100401
  Transmission Date: 20101027
  Serious: Yes (Hospitalization)
  Sender: FDA-Public Use
  Company Number: JP-ROCHE-664627

PATIENT
  Sex: Male
  Weight: 54 kg

DRUGS (3)
  1. PEGASYS [Suspect]
     Indication: HEPATITIS C
     Route: 058
     Dates: start: 20070718, end: 20090721
  2. MAGNESIUM OXIDE [Concomitant]
     Route: 048
     Dates: start: 20070925, end: 20080501
  3. MAGLAX [Concomitant]
     Route: 048
     Dates: start: 20080701, end: 20090701

REACTIONS (2)
  - ACQUIRED HAEMOPHILIA [None]
  - ATYPICAL MYCOBACTERIAL INFECTION [None]
